FAERS Safety Report 9897285 (Version 1)
Quarter: 2014Q1

REPORT INFORMATION
  Report Type: Spontaneous
  Country: CH (occurrence: CH)
  Receive Date: 20140214
  Receipt Date: 20140214
  Transmission Date: 20141002
  Serious: Yes (Hospitalization)
  Sender: FDA-Public Use
  Company Number: CH-009507513-1402CHE001744

PATIENT
  Age: 71 Year
  Sex: Male

DRUGS (3)
  1. TEMODAL [Suspect]
     Indication: GLIOBLASTOMA
     Dosage: 1 CAPSULE (100 MG), QD
     Route: 048
     Dates: start: 20131111, end: 20131211
  2. TEMODAL [Suspect]
     Indication: GLIOBLASTOMA
     Dosage: 2 CAPSULES, (40 MG), QD
     Route: 048
     Dates: start: 20131111, end: 20131211
  3. FORTECORTIN [Suspect]
     Dosage: 4 MG, QD
     Route: 048
     Dates: start: 20131119

REACTIONS (2)
  - Diabetes mellitus [Not Recovered/Not Resolved]
  - Hepatic enzyme increased [Not Recovered/Not Resolved]
